FAERS Safety Report 5501355-7 (Version None)
Quarter: 2007Q4

REPORT INFORMATION
  Report Type: 
  Country: None (occurrence: None)
  Receive Date: 20071022
  Receipt Date: 20061127
  Transmission Date: 20080405
  Serious: Yes (Other)
  Sender: FDA-Public Use
  Company Number: 150339USA

PATIENT
  Age: 6 Year
  Sex: Male
  Weight: 19.0511 kg

DRUGS (5)
  1. CLONAZEPAM [Suspect]
     Dosage: 2 MG (0.5 MG, 4 IN 1 D)
     Dates: start: 20061118
  2. TOPIRAMATE [Concomitant]
  3. RANITIDINE HYDROCHLORIDE [Concomitant]
  4. LAMOTRIGINE [Concomitant]
  5. MACROGOL [Concomitant]

REACTIONS (1)
  - CONVULSION [None]
